FAERS Safety Report 10506217 (Version 2)
Quarter: 2014Q4

REPORT INFORMATION
  Report Type: Spontaneous
  Country: CH (occurrence: CH)
  Receive Date: 20141009
  Receipt Date: 20141009
  Transmission Date: 20150528
  Serious: Yes (Death, Hospitalization, Other)
  Sender: FDA-Public Use
  Company Number: CH-RANBAXY-2014RR-85567

PATIENT
  Age: 68 Year
  Sex: Female

DRUGS (1)
  1. SUMATRIPTAN. [Suspect]
     Active Substance: SUMATRIPTAN
     Indication: MIGRAINE
     Dosage: UNK
     Route: 065

REACTIONS (4)
  - Hemiparesis [Unknown]
  - Loss of consciousness [Unknown]
  - Brain oedema [Fatal]
  - Reversible cerebral vasoconstriction syndrome [Fatal]
